FAERS Safety Report 23344870 (Version 1)
Quarter: 2023Q4

REPORT INFORMATION
  Report Type: Report from Study
  Country: US (occurrence: US)
  Receive Date: 20231228
  Receipt Date: 20231228
  Transmission Date: 20240110
  Serious: No
  Sender: FDA-Public Use
  Company Number: US-ACADIA PHARMACEUTICALS INC.-ACA-2023-PIM-005587

PATIENT
  Sex: Male

DRUGS (15)
  1. NUPLAZID [Suspect]
     Active Substance: PIMAVANSERIN TARTRATE
     Indication: Parkinson^s disease
     Dosage: 10 MILLIGRAM, QD
     Route: 048
     Dates: start: 20231109, end: 20231128
  2. NUPLAZID [Suspect]
     Active Substance: PIMAVANSERIN TARTRATE
     Indication: Hallucination
  3. NUPLAZID [Suspect]
     Active Substance: PIMAVANSERIN TARTRATE
     Indication: Delusion
  4. NUPLAZID [Suspect]
     Active Substance: PIMAVANSERIN TARTRATE
     Indication: Illness
  5. QUETIAPINE FUMARATE [Concomitant]
     Active Substance: QUETIAPINE FUMARATE
  6. DULOXETINE [Concomitant]
     Active Substance: DULOXETINE
  7. DIAZEPAM [Concomitant]
     Active Substance: DIAZEPAM
  8. MEMANTINE [Concomitant]
     Active Substance: MEMANTINE
  9. SILODOSIN [Concomitant]
     Active Substance: SILODOSIN
  10. FINASTERIDE [Concomitant]
     Active Substance: FINASTERIDE
  11. SULFAMETHOXAZOLE AND TRIMETHOPRIM [Concomitant]
     Active Substance: SULFAMETHOXAZOLE\TRIMETHOPRIM
  12. MUCINEX [Concomitant]
     Active Substance: GUAIFENESIN
  13. COLACE [Concomitant]
     Active Substance: DOCUSATE SODIUM
  14. AVODART [Concomitant]
     Active Substance: DUTASTERIDE
  15. D3-2000 [Concomitant]

REACTIONS (3)
  - Adverse drug reaction [Unknown]
  - Confusional state [Unknown]
  - Hallucination [Unknown]
